FAERS Safety Report 17424414 (Version 1)
Quarter: 2020Q1

REPORT INFORMATION
  Report Type: Spontaneous
  Country: RU (occurrence: RU)
  Receive Date: 20200217
  Receipt Date: 20200217
  Transmission Date: 20200409
  Serious: Yes (Other)
  Sender: FDA-Public Use
  Company Number: NVSC2020RU041951

PATIENT
  Age: 74 Year
  Sex: Female

DRUGS (10)
  1. METOCLOPRAMIDE. [Concomitant]
     Active Substance: METOCLOPRAMIDE
     Indication: NAUSEA
     Dosage: 1 DF, BID
     Route: 042
     Dates: start: 20190601, end: 20190606
  2. FERRIC HYDROXIDE POLYMALTOSE [Concomitant]
     Active Substance: IRON POLYMALTOSE
     Indication: ANAEMIA
     Dosage: 1 DF, BID
     Route: 048
     Dates: start: 20190516, end: 201906
  3. CHLOROPYRAMINE [Concomitant]
     Active Substance: CHLOROPYRAMINE
     Indication: URTICARIA
     Dosage: 3 DF, TID
     Route: 065
     Dates: start: 20190605, end: 201906
  4. MOXIFLOXACIN. [Concomitant]
     Active Substance: MOXIFLOXACIN
     Indication: MEDICAL DEVICE SITE JOINT INFECTION
     Dosage: 1 MG, QD
     Route: 042
     Dates: start: 20190516, end: 20190605
  5. OMEPRAZOLE. [Concomitant]
     Active Substance: OMEPRAZOLE
     Indication: GASTROINTESTINAL ULCER
     Dosage: UNK UNK, BID
     Route: 048
     Dates: start: 20190516, end: 20190623
  6. ENOXAPARIN SODIUM. [Concomitant]
     Active Substance: ENOXAPARIN SODIUM
     Indication: THROMBOSIS
     Dosage: 1 MG, QD
     Route: 058
     Dates: start: 20190516, end: 201906
  7. AMOXICILLIN+CLAVULANIC ACID [Concomitant]
     Active Substance: AMOXICILLIN\CLAVULANIC ACID
     Indication: MEDICAL DEVICE SITE JOINT INFECTION
     Dosage: 1.2 MG, TID
     Route: 042
     Dates: start: 20190605, end: 20190605
  8. KETOROLAC [Concomitant]
     Active Substance: KETOROLAC TROMETHAMINE
     Indication: ANALGESIC THERAPY
     Dosage: UNK, QD
     Route: 030
     Dates: start: 20190516, end: 201906
  9. VANCOMYCIN [Suspect]
     Active Substance: VANCOMYCIN
     Indication: MEDICAL DEVICE SITE JOINT INFECTION
     Dosage: 1 G, BID
     Route: 042
     Dates: start: 20190516, end: 20190605
  10. ENALAPRIL [Concomitant]
     Active Substance: ENALAPRIL
     Indication: HYPERTENSION
     Dosage: UNK UNK, QD
     Route: 048
     Dates: start: 20190516, end: 201906

REACTIONS (3)
  - Neutropenia [Recovered/Resolved]
  - Vomiting [Recovered/Resolved]
  - Urticaria [Recovered/Resolved]

NARRATIVE: CASE EVENT DATE: 20190601
